FAERS Safety Report 8003988-5 (Version None)
Quarter: 2011Q4

REPORT INFORMATION
  Report Type: 
  Country: None (occurrence: None)
  Receive Date: 20111222
  Receipt Date: 20111221
  Transmission Date: 20120403
  Serious: Yes (Hospitalization)
  Sender: FDA-Public Use
  Company Number: AU-ROCHE-1024054

PATIENT
  Age: 23 Year
  Sex: Female

DRUGS (1)
  1. MYCOPHENOLATE MOFETIL (CELLCEPT) [Suspect]
     Indication: KIDNEY INFECTION
     Route: 065
     Dates: start: 20111220

REACTIONS (5)
  - DIARRHOEA [None]
  - PAIN [None]
  - HAEMATOCHEZIA [None]
  - HEADACHE [None]
  - ABDOMINAL PAIN UPPER [None]
